FAERS Safety Report 24260080 (Version 1)
Quarter: 2024Q3

REPORT INFORMATION
  Report Type: Spontaneous
  Country: US (occurrence: None)
  Receive Date: 20240827
  Receipt Date: 20240827
  Transmission Date: 20241016
  Serious: No
  Sender: Public
  Company Number: None

PATIENT
  Age: 56 Year
  Sex: Female
  Weight: 2.5 kg

DRUGS (2)
  1. LUMIGAN [Suspect]
     Active Substance: BIMATOPROST
  2. ALLERGAN [Concomitant]

REACTIONS (8)
  - Eye pain [None]
  - Vision blurred [None]
  - Headache [None]
  - Stress [None]
  - Depression [None]
  - Eyelid pain [None]
  - Skin irritation [None]
  - Eye irritation [None]

NARRATIVE: CASE EVENT DATE: 20240824
